FAERS Safety Report 17999515 (Version 1)
Quarter: 2020Q3

REPORT INFORMATION
  Report Type: Spontaneous
  Country: US (occurrence: US)
  Receive Date: 20200709
  Receipt Date: 20200709
  Transmission Date: 20201103
  Serious: Yes (Hospitalization)
  Sender: FDA-Public Use
  Company Number: None

PATIENT
  Sex: Male
  Weight: 85.1 kg

DRUGS (5)
  1. CYTARABINE. [Suspect]
     Active Substance: CYTARABINE
  2. DAUNORUBICIN [Suspect]
     Active Substance: DAUNORUBICIN
  3. VINCRISTINE SULFATE. [Suspect]
     Active Substance: VINCRISTINE SULFATE
  4. DEXAMETHASONE. [Suspect]
     Active Substance: DEXAMETHASONE
  5. ONCASPAR [Suspect]
     Active Substance: PEGASPARGASE

REACTIONS (2)
  - Electrocardiogram QT prolonged [None]
  - Hypercalcaemia [None]

NARRATIVE: CASE EVENT DATE: 20200623
